FAERS Safety Report 7243274-4 (Version None)
Quarter: 2011Q1

REPORT INFORMATION
  Report Type: 
  Country: None (occurrence: None)
  Receive Date: 20110125
  Receipt Date: 20110113
  Transmission Date: 20110831
  Serious: Yes (Death, Other)
  Sender: FDA-Public Use
  Company Number: US-ROCHE-754747

PATIENT
  Sex: Male

DRUGS (1)
  1. NAPROXEN [Suspect]
     Route: 065

REACTIONS (2)
  - LYME DISEASE [None]
  - ACUTE MYOCARDIAL INFARCTION [None]
